FAERS Safety Report 10337322 (Version 1)
Quarter: 2014Q3

REPORT INFORMATION
  Report Type: Spontaneous
  Country: IT (occurrence: IT)
  Receive Date: 20140723
  Receipt Date: 20140723
  Transmission Date: 20150326
  Serious: Yes (Other)
  Sender: FDA-Public Use
  Company Number: IT-BAXTER-2014BAX039853

PATIENT
  Age: 36 Year
  Sex: Female

DRUGS (1)
  1. TISSEEL [Suspect]
     Active Substance: FIBRINOGEN HUMAN\THROMBIN HUMAN
     Indication: BRONCHIAL ANASTOMOSIS
     Route: 065

REACTIONS (1)
  - Postoperative thoracic procedure complication [Recovered/Resolved]
